FAERS Safety Report 7486940-8 (Version None)
Quarter: 2011Q2

REPORT INFORMATION
  Report Type: 
  Country: None (occurrence: None)
  Receive Date: 20110517
  Receipt Date: 20101005
  Transmission Date: 20111010
  Serious: No
  Sender: FDA-Public Use
  Company Number: US-AMGEN-TCS437436

PATIENT
  Age: 57 Year
  Sex: Male
  Weight: 84 kg

DRUGS (4)
  1. OMEPRAZOLE [Concomitant]
     Dosage: 20 MG, QD
     Route: 048
     Dates: start: 20100310
  2. ENBREL [Suspect]
     Indication: PSORIATIC ARTHROPATHY
     Dosage: 50 MG, QWK
     Route: 058
     Dates: start: 20100720
  3. MELOXICAM [Concomitant]
     Dosage: 15 MG, QD
     Route: 048
     Dates: start: 20100309
  4. ENBREL [Suspect]
     Indication: PSORIASIS

REACTIONS (8)
  - CONTUSION [None]
  - INJECTION SITE PAIN [None]
  - TRANSAMINASES INCREASED [None]
  - DRUG INEFFECTIVE [None]
  - WHITE BLOOD CELL COUNT DECREASED [None]
  - MUSCULOSKELETAL STIFFNESS [None]
  - JOINT SPRAIN [None]
  - PLATELET COUNT DECREASED [None]
